FAERS Safety Report 15411131 (Version 3)
Quarter: 2018Q4

REPORT INFORMATION
  Report Type: Report from Study
  Country: US (occurrence: US)
  Receive Date: 20180921
  Receipt Date: 20181112
  Transmission Date: 20190204
  Serious: Yes (Hospitalization)
  Sender: FDA-Public Use
  Company Number: US-EMD SERONO-E2B_90059611

PATIENT
  Sex: Female
  Weight: 94 kg

DRUGS (10)
  1. TOPAMAX [Concomitant]
     Active Substance: TOPIRAMATE
     Indication: PRODUCT USED FOR UNKNOWN INDICATION
     Dosage: NIGHTLY
  2. CONCERTA [Concomitant]
     Active Substance: METHYLPHENIDATE HYDROCHLORIDE
     Indication: PRODUCT USED FOR UNKNOWN INDICATION
     Dates: start: 20180621
  3. NAPROXEN. [Concomitant]
     Active Substance: NAPROXEN
  4. REBIF [Suspect]
     Active Substance: INTERFERON BETA-1A
     Route: 058
     Dates: start: 201611
  5. PREVACID [Concomitant]
     Active Substance: LANSOPRAZOLE
     Indication: GASTROOESOPHAGEAL REFLUX DISEASE
     Dosage: NIGHTLY
     Dates: start: 20140501
  6. MULTIVITAMIN                       /00097801/ [Concomitant]
     Active Substance: VITAMINS
     Indication: PRODUCT USED FOR UNKNOWN INDICATION
     Dosage: DAILY
  7. REBIF [Suspect]
     Active Substance: INTERFERON BETA-1A
     Indication: MULTIPLE SCLEROSIS
     Dosage: 0.5 ML
     Route: 058
     Dates: start: 20160801
  8. TRAZODONE [Concomitant]
     Active Substance: TRAZODONE HYDROCHLORIDE
     Indication: INSOMNIA
     Dosage: NIGHTLY, 1 BEFORE BED TIME
     Route: 048
     Dates: start: 20160829
  9. VALTREX [Concomitant]
     Active Substance: VALACYCLOVIR HYDROCHLORIDE
     Indication: ORAL HERPES
     Dosage: DAILY
     Dates: start: 20140501
  10. TOPAMAX [Concomitant]
     Active Substance: TOPIRAMATE
     Dosage: TWO HOURS AT BED TIME
     Dates: start: 20180531

REACTIONS (7)
  - Leiomyoma [Recovered/Resolved]
  - Adenomyosis [Recovered/Resolved]
  - Injection site bruising [Recovering/Resolving]
  - Endometriosis [Recovered/Resolved]
  - Ovarian cyst [Recovered/Resolved]
  - Injection site erythema [Recovering/Resolving]
  - Cervix inflammation [Recovered/Resolved]
